FAERS Safety Report 7308575-X (Version None)
Quarter: 2011Q1

REPORT INFORMATION
  Report Type: 
  Country: None (occurrence: None)
  Receive Date: 20110211
  Receipt Date: 20110131
  Transmission Date: 20110831
  Serious: Yes (Death, Other)
  Sender: FDA-Public Use
  Company Number: 2011MA001014

PATIENT
  Age: 61 Year
  Sex: Female

DRUGS (5)
  1. FLUDARABINE PHOSPHATE [Suspect]
  2. PREV MEDS [Concomitant]
  3. MABTHERA (FLUDARABINE) [Suspect]
     Indication: PRODUCT USED FOR UNKNOWN INDICATION
  4. CYCLOPHOSPHAMIDE [Concomitant]
  5. CON MEDS [Concomitant]

REACTIONS (2)
  - PANCYTOPENIA [None]
  - SEPSIS [None]
